FAERS Safety Report 4724439-X (Version None)
Quarter: 2005Q3

REPORT INFORMATION
  Report Type: 
  Country: None (occurrence: None)
  Receive Date: 20050722
  Receipt Date: 20050722
  Transmission Date: 20060218
  Serious: Yes (Hospitalization)
  Sender: FDA-Public Use
  Company Number: None

PATIENT
  Age: 51 Year
  Sex: Female
  Weight: 89.3586 kg

DRUGS (18)
  1. BEVACIZUMAB [Suspect]
     Indication: HEPATIC NEOPLASM MALIGNANT
     Dosage: 10 MG/KG IV Q 2 WEEKS
     Dates: start: 20041006, end: 20041122
  2. GEMCITABINE / OXALIPLATIN [Suspect]
     Indication: HEPATIC NEOPLASM MALIGNANT
     Dosage: 1000 MG/M2 /85 MG/M2
     Dates: start: 20041006, end: 20041123
  3. ALBUTEROL [Concomitant]
  4. CELEXA [Concomitant]
  5. COMPAZINE [Concomitant]
  6. GLYBURIDE [Concomitant]
  7. IBUPROFEN [Concomitant]
  8. LANCETS [Concomitant]
  9. LANTUS [Concomitant]
  10. LORAZEPAM [Concomitant]
  11. LOTRIMIN [Concomitant]
  12. METFORMIN HCL [Concomitant]
  13. MS CONTIN [Concomitant]
  14. PROTONIX [Concomitant]
  15. SURESTEP [Concomitant]
  16. SYRINGE 100U/CC [Concomitant]
  17. TRAZODONE HCL [Concomitant]
  18. ULTRAM [Concomitant]

REACTIONS (4)
  - DIARRHOEA [None]
  - ENTERITIS [None]
  - NAUSEA [None]
  - VOMITING [None]
